FAERS Safety Report 17474396 (Version 1)
Quarter: 2020Q1

REPORT INFORMATION
  Report Type: Spontaneous
  Country: US (occurrence: US)
  Receive Date: 20200228
  Receipt Date: 20200228
  Transmission Date: 20200409
  Serious: No
  Sender: FDA-Public Use
  Company Number: US-HORIZON-VIM-0020-2020

PATIENT
  Age: 59 Year
  Sex: Female

DRUGS (1)
  1. VIMOVO [Suspect]
     Active Substance: ESOMEPRAZOLE MAGNESIUM\NAPROXEN
     Indication: ARTHRITIS
     Dosage: TAKING ONCE A DAY
     Dates: start: 20200214

REACTIONS (2)
  - Therapeutic product effect decreased [Unknown]
  - Intentional product use issue [Unknown]
